FAERS Safety Report 6534617-5 (Version None)
Quarter: 2010Q1

REPORT INFORMATION
  Report Type: 
  Country: None (occurrence: None)
  Receive Date: 20100112
  Receipt Date: 20100106
  Transmission Date: 20100710
  Serious: Yes (Hospitalization)
  Sender: FDA-Public Use
  Company Number: B0618498A

PATIENT
  Sex: Female
  Weight: 51 kg

DRUGS (7)
  1. ARIXTRA [Suspect]
     Indication: THROMBOSIS PROPHYLAXIS
     Dosage: 2.5MG PER DAY
     Route: 058
     Dates: start: 20091127, end: 20091210
  2. WARFARIN [Concomitant]
     Indication: VENOUS THROMBOSIS
     Dosage: 2MG PER DAY
     Route: 048
     Dates: start: 20091203
  3. LORCAM [Concomitant]
     Indication: ANALGESIC THERAPY
     Dosage: 12MG PER DAY
     Route: 048
  4. MEVALOTIN [Concomitant]
     Dosage: 10MG PER DAY
     Route: 048
  5. HERBESSER [Concomitant]
     Indication: HYPERTENSION
     Dosage: 90MG PER DAY
     Route: 048
  6. TANATRIL [Concomitant]
     Indication: HYPERTENSION
     Dosage: 5MG PER DAY
     Route: 048
  7. MERISLON [Concomitant]
     Indication: DIZZINESS
     Dosage: 18MG PER DAY
     Route: 048

REACTIONS (3)
  - BLOOD CREATININE INCREASED [None]
  - HAEMATOMA [None]
  - PLATELET COUNT DECREASED [None]
